FAERS Safety Report 23506484 (Version 4)
Quarter: 2024Q2

REPORT INFORMATION
  Report Type: Spontaneous
  Country: US (occurrence: US)
  Receive Date: 20240209
  Receipt Date: 20240604
  Transmission Date: 20240716
  Serious: No
  Sender: FDA-Public Use
  Company Number: US-BRISTOL-MYERS SQUIBB COMPANY-2024-021198

PATIENT
  Age: 58 Year
  Sex: Male
  Weight: 72.57 kg

DRUGS (5)
  1. POMALYST [Suspect]
     Active Substance: POMALIDOMIDE
     Indication: Plasma cell myeloma
     Route: 048
     Dates: start: 20240105
  2. POMALYST [Suspect]
     Active Substance: POMALIDOMIDE
     Route: 048
     Dates: start: 20240105
  3. POMALYST [Suspect]
     Active Substance: POMALIDOMIDE
     Route: 048
     Dates: start: 20240109
  4. OMEPRAZOLE [Concomitant]
     Active Substance: DONEPEZIL HYDROCHLORIDE\OMEPRAZOLE\OMEPRAZOLE MAGNESIUM
     Indication: Product used for unknown indication
  5. XIFAXAN [Concomitant]
     Active Substance: RIFAXIMIN
     Indication: Product used for unknown indication

REACTIONS (7)
  - Influenza like illness [Not Recovered/Not Resolved]
  - Laboratory test abnormal [Not Recovered/Not Resolved]
  - Headache [Not Recovered/Not Resolved]
  - Fluid retention [Not Recovered/Not Resolved]
  - Fatigue [Not Recovered/Not Resolved]
  - Drug intolerance [Unknown]
  - Oedema [Unknown]
